FAERS Safety Report 12754362 (Version 1)
Quarter: 2016Q3

REPORT INFORMATION
  Report Type: Report from Study
  Country: BR (occurrence: BR)
  Receive Date: 20160916
  Receipt Date: 20160916
  Transmission Date: 20161109
  Serious: Yes (Other)
  Sender: FDA-Public Use
  Company Number: BR-ROCHE-715198

PATIENT
  Age: 52 Year
  Sex: Female
  Weight: 72 kg

DRUGS (24)
  1. MABTHERA [Suspect]
     Active Substance: RITUXIMAB
     Route: 042
     Dates: start: 20101104, end: 20101104
  2. CALCIUM CARBONATE. [Concomitant]
     Active Substance: CALCIUM CARBONATE
     Route: 065
  3. TRIAMCINOLONE [Concomitant]
     Active Substance: TRIAMCINOLONE
     Route: 065
  4. MANGANESE [Concomitant]
     Active Substance: MANGANESE\MANGANESE CHLORIDE
     Route: 065
  5. VITAMIN K [Concomitant]
     Active Substance: PHYTONADIONE
  6. BORON [Concomitant]
     Active Substance: BORON
     Route: 065
  7. MABTHERA [Suspect]
     Active Substance: RITUXIMAB
     Route: 042
  8. TRIAMCINOLONE [Concomitant]
     Active Substance: TRIAMCINOLONE
     Route: 065
  9. MAGNESIUM CHLORIDE. [Concomitant]
     Active Substance: MAGNESIUM CHLORIDE
     Route: 065
  10. CHLORTHALIDONE. [Concomitant]
     Active Substance: CHLORTHALIDONE
     Route: 065
  11. MABTHERA [Suspect]
     Active Substance: RITUXIMAB
     Dosage: (2 INFUSIONS)
     Route: 042
     Dates: start: 20100422, end: 20100507
  12. METHOTREXATE. [Concomitant]
     Active Substance: METHOTREXATE
     Route: 065
  13. METHOTREXATE. [Concomitant]
     Active Substance: METHOTREXATE
     Route: 065
  14. COPPER [Concomitant]
     Active Substance: COPPER
     Route: 065
  15. VITAMIN K [Concomitant]
     Active Substance: PHYTONADIONE
     Route: 065
  16. CALTRATE [Concomitant]
     Active Substance: CALCIUM CARBONATE
     Route: 065
  17. FOLIC ACID. [Concomitant]
     Active Substance: FOLIC ACID
  18. FAMOTIDINE. [Concomitant]
     Active Substance: FAMOTIDINE
     Route: 065
  19. MABTHERA [Suspect]
     Active Substance: RITUXIMAB
     Indication: RHEUMATOID ARTHRITIS
     Dosage: ROUTE: ENDOVENOUS, FORM INFUSIONS, (2 INFUSIONS)??MOST RECENT INFUSION ON 18/NOV/2015
     Route: 042
     Dates: start: 20091001, end: 20091029
  20. ALENDRONATE SODIUM. [Concomitant]
     Active Substance: ALENDRONATE SODIUM
  21. TYLENOL [Concomitant]
     Active Substance: ACETAMINOPHEN
     Indication: PREMEDICATION
  22. ALUMINUM CHLORIDE [Concomitant]
     Active Substance: ALUMINUM CHLORIDE
     Route: 065
  23. SOYA ISOFLAVONES [Concomitant]
     Active Substance: ISOFLAVONES SOY
     Dosage: DRUG: SOYA ISOFLAVONE
     Route: 065
  24. DICLOFENAC [Concomitant]
     Active Substance: DICLOFENAC
     Route: 065

REACTIONS (10)
  - Joint swelling [Unknown]
  - Vomiting [Recovered/Resolved]
  - Pain [Unknown]
  - Skin injury [Recovering/Resolving]
  - Skin infection [Recovering/Resolving]
  - Ill-defined disorder [Unknown]
  - Urinary tract infection [Unknown]
  - Peripheral swelling [Unknown]
  - Hypothyroidism [Unknown]
  - Arthropathy [Unknown]

NARRATIVE: CASE EVENT DATE: 2010
